FAERS Safety Report 25245031 (Version 1)
Quarter: 2025Q2

REPORT INFORMATION
  Report Type: Spontaneous
  Country: US (occurrence: US)
  Receive Date: 20250428
  Receipt Date: 20250428
  Transmission Date: 20250717
  Serious: Yes (Death, Other)
  Sender: Steriscience PTE
  Company Number: US-STERISCIENCE B.V.-2025-ST-000815

PATIENT
  Age: 62 Year
  Sex: Male

DRUGS (15)
  1. MEROPENEM [Suspect]
     Active Substance: MEROPENEM
     Indication: Clostridium difficile infection
     Route: 065
  2. MEROPENEM [Suspect]
     Active Substance: MEROPENEM
     Indication: Clostridial infection
  3. MEROPENEM [Suspect]
     Active Substance: MEROPENEM
     Indication: Antibiotic therapy
  4. VANCOMYCIN [Suspect]
     Active Substance: VANCOMYCIN
     Indication: Antibiotic therapy
     Route: 065
  5. METRONIDAZOLE [Suspect]
     Active Substance: METRONIDAZOLE
     Indication: Clostridial infection
     Route: 042
  6. METRONIDAZOLE [Suspect]
     Active Substance: METRONIDAZOLE
     Indication: Peritonitis
  7. METRONIDAZOLE [Suspect]
     Active Substance: METRONIDAZOLE
     Indication: Enteritis
  8. METRONIDAZOLE [Suspect]
     Active Substance: METRONIDAZOLE
     Indication: Antibiotic therapy
  9. ERAVACYCLINE [Suspect]
     Active Substance: ERAVACYCLINE
     Indication: Clostridium difficile infection
     Route: 065
  10. ERAVACYCLINE [Suspect]
     Active Substance: ERAVACYCLINE
     Indication: Clostridial infection
  11. ERAVACYCLINE [Suspect]
     Active Substance: ERAVACYCLINE
     Indication: Antibiotic therapy
  12. VANCOMYCIN [Suspect]
     Active Substance: VANCOMYCIN
     Indication: Peritonitis
     Route: 048
  13. VANCOMYCIN [Suspect]
     Active Substance: VANCOMYCIN
     Indication: Clostridial infection
  14. VANCOMYCIN [Suspect]
     Active Substance: VANCOMYCIN
     Indication: Enteritis
  15. VANCOMYCIN [Suspect]
     Active Substance: VANCOMYCIN
     Indication: Antibiotic therapy

REACTIONS (3)
  - Sepsis [Fatal]
  - Multiple organ dysfunction syndrome [Fatal]
  - Drug ineffective [Fatal]
